FAERS Safety Report 4425854-4 (Version None)
Quarter: 2004Q3

REPORT INFORMATION
  Report Type: 
  Country: None (occurrence: None)
  Receive Date: 20040810
  Receipt Date: 20040723
  Transmission Date: 20050211
  Serious: Yes (Other)
  Sender: FDA-Public Use
  Company Number: 2004224967JP

PATIENT
  Age: 50 Year
  Sex: Male

DRUGS (3)
  1. ETOPOSIDE [Suspect]
     Indication: EWING'S SARCOMA
     Dosage: 150 MG, QD/2 CYCLES
  2. IFOSFAMIDE [Suspect]
     Indication: EWING'S SARCOMA
     Dosage: 3 G, QD/2 CYCLES
  3. DOXORUBICIN HYDROCHLORIDE [Suspect]
     Indication: EWING'S SARCOMA
     Dosage: 30 MG, QD/2 CYCLES

REACTIONS (4)
  - EWING'S SARCOMA [None]
  - METASTASES TO BONE [None]
  - PANCYTOPENIA [None]
  - PNEUMONIA [None]
